FAERS Safety Report 9299439 (Version 1)
Quarter: 2013Q2

REPORT INFORMATION
  Report Type: Spontaneous
  Country: US (occurrence: US)
  Receive Date: 20130521
  Receipt Date: 20130521
  Transmission Date: 20140414
  Serious: No
  Sender: FDA-Public Use
  Company Number: US-009507513-1305USA009722

PATIENT
  Age: 70 Year
  Sex: Female

DRUGS (8)
  1. SAPHRIS [Suspect]
     Indication: DEPRESSION
     Dosage: 5 MG, QD
     Route: 060
     Dates: start: 20130509, end: 20130511
  2. SAPHRIS [Suspect]
     Indication: SOMNOLENCE
  3. EFFEXOR [Concomitant]
  4. OXYCODONE [Concomitant]
  5. SYNTHROID [Concomitant]
  6. VESICARE [Concomitant]
  7. REQUIP [Concomitant]
  8. KEPPRA [Concomitant]

REACTIONS (4)
  - Vomiting [Not Recovered/Not Resolved]
  - Hypertension [Not Recovered/Not Resolved]
  - Underdose [Unknown]
  - Inappropriate schedule of drug administration [Unknown]
